FAERS Safety Report 15907461 (Version 1)
Quarter: 2019Q1

REPORT INFORMATION
  Report Type: Spontaneous
  Country: CN (occurrence: CN)
  Receive Date: 20190204
  Receipt Date: 20190204
  Transmission Date: 20190417
  Serious: Yes (Other)
  Sender: FDA-Public Use
  Company Number: CN-PFIZER INC-2019038594

PATIENT
  Age: 60 Year
  Sex: Male
  Weight: 53 kg

DRUGS (2)
  1. VORICONAZOLE. [Suspect]
     Active Substance: VORICONAZOLE
     Indication: INFECTION
     Dosage: 0.2 G, 1X/DAY
     Route: 041
     Dates: start: 20180921, end: 20180926
  2. VORICONAZOLE. [Suspect]
     Active Substance: VORICONAZOLE
     Indication: INFECTION
     Dosage: 0.1 G, 1X/DAY
     Route: 048
     Dates: start: 20180927, end: 20181004

REACTIONS (6)
  - Mental disorder [Recovered/Resolved]
  - Dyschromatopsia [Recovered/Resolved]
  - Hallucination, visual [Recovered/Resolved]
  - Restlessness [Recovered/Resolved]
  - Chromatopsia [Recovered/Resolved]
  - Agitation [Recovered/Resolved]

NARRATIVE: CASE EVENT DATE: 20181004
